FAERS Safety Report 25083652 (Version 1)
Quarter: 2025Q1

REPORT INFORMATION
  Report Type: Spontaneous
  Country: US (occurrence: US)
  Receive Date: 20250317
  Receipt Date: 20250317
  Transmission Date: 20250408
  Serious: No
  Sender: BAXTER
  Company Number: US-BAXTER-2025BAX012577

PATIENT

DRUGS (1)
  1. HEPARIN SODIUM [Suspect]
     Active Substance: HEPARIN SODIUM
     Route: 065

REACTIONS (3)
  - Device infusion issue [Unknown]
  - Incorrect dose administered [Unknown]
  - Therapeutic response decreased [Unknown]
